FAERS Safety Report 7799153-7 (Version None)
Quarter: 2011Q4

REPORT INFORMATION
  Report Type: 
  Country: None (occurrence: None)
  Receive Date: 20111006
  Receipt Date: 20110930
  Transmission Date: 20120403
  Serious: Yes (Other)
  Sender: FDA-Public Use
  Company Number: US-PFIZER INC-2011234531

PATIENT
  Sex: Female
  Weight: 20.4 kg

DRUGS (1)
  1. SOMATROPIN RDNA [Suspect]
     Indication: PRADER-WILLI SYNDROME
     Dosage: 0.5 MG, DAILY
     Route: 058
     Dates: start: 20070227

REACTIONS (1)
  - ADENOTONSILLECTOMY [None]
